FAERS Safety Report 5776516-2 (Version None)
Quarter: 2008Q2

REPORT INFORMATION
  Report Type: 
  Country: None (occurrence: None)
  Receive Date: 20080616
  Receipt Date: 20080603
  Transmission Date: 20081010
  Serious: Yes (Disabling, Other)
  Sender: FDA-Public Use
  Company Number: 2008AP001347

PATIENT
  Age: 47 Year
  Sex: Female

DRUGS (9)
  1. PAROXETINE HYDROCHLORIDE [Suspect]
     Indication: DEPRESSION
     Dosage: 60 MG; QD; PO, 15 MG; PO
     Route: 048
  2. HYDROCHLOROTHIAZIDE [Concomitant]
  3. OMEPRAZOLE [Concomitant]
  4. AMPRENAVIR [Concomitant]
  5. METOPROLOL [Concomitant]
  6. EMTRICITABINE [Concomitant]
  7. TENOFOVIR DISOPROXIL FUMARATE [Concomitant]
  8. OMEGA-3 TRIGLYCERIDES [Concomitant]
  9. PAROXETINE HCL [Concomitant]

REACTIONS (5)
  - BLINDNESS TRANSIENT [None]
  - DEAFNESS [None]
  - DRUG INEFFECTIVE [None]
  - DRUG WITHDRAWAL SYNDROME [None]
  - PARAESTHESIA [None]
